FAERS Safety Report 4462976-6 (Version None)
Quarter: 2004Q3

REPORT INFORMATION
  Report Type: 
  Country: None (occurrence: None)
  Receive Date: 20040927
  Receipt Date: 20040914
  Transmission Date: 20050211
  Serious: Yes (Hospitalization, Other)
  Sender: FDA-Public Use
  Company Number: 2004065269

PATIENT
  Sex: Male

DRUGS (3)
  1. ZYRTEC [Suspect]
     Indication: DERMATITIS ALLERGIC
     Dosage: 10 MG (2.5 MG, 4 IN 1 D), ORAL
     Route: 048
     Dates: start: 20040615, end: 20040616
  2. ALL OTHER THERAPEUTIC PRODUCTS (ALL OTHER THERAPEUTIC PRODUCTS) [Concomitant]
  3. BISMUTH SUBCITRATE TRIPOTASSIUM (BISMUTH SUBCITRATE TRIPOTASSIUM) [Concomitant]

REACTIONS (4)
  - HERPES ZOSTER [None]
  - PETECHIAE [None]
  - PRURITUS [None]
  - RASH GENERALISED [None]
